FAERS Safety Report 12918395 (Version 1)
Quarter: 2016Q4

REPORT INFORMATION
  Report Type: Spontaneous
  Country: CN (occurrence: CN)
  Receive Date: 20161107
  Receipt Date: 20161107
  Transmission Date: 20170207
  Serious: Yes (Death)
  Sender: FDA-Public Use
  Company Number: CN-FRESENIUS KABI-FK201608429

PATIENT
  Age: 16 Year
  Sex: Male

DRUGS (1)
  1. VALPROATE [Suspect]
     Active Substance: VALPROIC ACID
     Indication: EPILEPSY
     Route: 065

REACTIONS (2)
  - Drug-induced liver injury [Fatal]
  - Acute hepatic failure [Fatal]
